FAERS Safety Report 21855441 (Version 1)
Quarter: 2023Q1

REPORT INFORMATION
  Report Type: Spontaneous
  Country: US (occurrence: None)
  Receive Date: 20230112
  Receipt Date: 20230112
  Transmission Date: 20230418
  Serious: Yes (Other)
  Sender: FDA-Public Use
  Company Number: None

PATIENT
  Sex: Female

DRUGS (2)
  1. DYSPORT [Suspect]
     Active Substance: ABOBOTULINUMTOXINA
  2. UNSPECIFIED INGREDIENT [Suspect]
     Active Substance: UNSPECIFIED INGREDIENT

REACTIONS (15)
  - Electric shock sensation [None]
  - Movement disorder [None]
  - Muscle twitching [None]
  - Swelling [None]
  - Electric shock sensation [None]
  - Vision blurred [None]
  - Dyspnoea [None]
  - Feeling abnormal [None]
  - Neck pain [None]
  - Nausea [None]
  - Photophobia [None]
  - Oversensing [None]
  - Thyroid disorder [None]
  - Stress [None]
  - Muscle tightness [None]

NARRATIVE: CASE EVENT DATE: 20210115
